FAERS Safety Report 15551336 (Version 1)
Quarter: 2018Q4

REPORT INFORMATION
  Report Type: Spontaneous
  Country: US (occurrence: US)
  Receive Date: 20181022
  Receipt Date: 20181022
  Transmission Date: 20190205
  Serious: Yes (Other)
  Sender: FDA-Public Use
  Company Number: None

PATIENT
  Age: 55 Year
  Sex: Female
  Weight: 65.77 kg

DRUGS (17)
  1. NAPROXEN. [Concomitant]
     Active Substance: NAPROXEN
  2. ASPIRIN. [Concomitant]
     Active Substance: ASPIRIN
  3. ZINC. [Concomitant]
     Active Substance: ZINC
  4. LUTEIN [Concomitant]
     Active Substance: LUTEIN
  5. GLUCOSAMINE-CHONDROTIN [Concomitant]
  6. VITAMIN B COMPLEX [Concomitant]
     Active Substance: CYANOCOBALAMIN\DEXPANTHENOL\NIACINAMIDE\PYRIDOXINE HYDROCHLORIDE\RIBOFLAVIN 5^-PHOSPHATE SODIUM\THIAMINE HYDROCHLORIDE\VITAMIN B COMPLEX
  7. VITAMIN A [Concomitant]
     Active Substance: VITAMIN A
  8. EXEMESTANE. [Suspect]
     Active Substance: EXEMESTANE
     Indication: BLOOD OESTROGEN INCREASED
     Dosage: ?          QUANTITY:30 DF DOSAGE FORM;?
     Route: 048
     Dates: start: 201303, end: 201501
  9. EXEMESTANE. [Suspect]
     Active Substance: EXEMESTANE
     Indication: INTRADUCTAL PROLIFERATIVE BREAST LESION
     Dosage: ?          QUANTITY:30 DF DOSAGE FORM;?
     Route: 048
     Dates: start: 201303, end: 201501
  10. XOPENEX HFA [Concomitant]
     Active Substance: LEVALBUTEROL TARTRATE
  11. VITAMIN B12 [Concomitant]
     Active Substance: CYANOCOBALAMIN
  12. VITAMIN C [Concomitant]
     Active Substance: ASCORBIC ACID
  13. B6 [Concomitant]
     Active Substance: PYRIDOXINE HYDROCHLORIDE
  14. VITAMIN D [Concomitant]
     Active Substance: CHOLECALCIFEROL
  15. OB [Concomitant]
  16. EXEMESTANE. [Suspect]
     Active Substance: EXEMESTANE
     Indication: BREAST CONSERVING SURGERY
     Dosage: ?          QUANTITY:30 DF DOSAGE FORM;?
     Route: 048
     Dates: start: 201303, end: 201501
  17. AIRBORNE [Concomitant]
     Active Substance: HERBALS\MINERALS\VITAMINS

REACTIONS (11)
  - Vaginal haemorrhage [None]
  - Trigger finger [None]
  - Cystocele [None]
  - Cyst [None]
  - Uterine prolapse [None]
  - Product dose omission [None]
  - Uterine leiomyoma [None]
  - Hernia [None]
  - Joint lock [None]
  - Hernia pain [None]
  - Postmenopausal haemorrhage [None]

NARRATIVE: CASE EVENT DATE: 2013
